FAERS Safety Report 6371015-1 (Version None)
Quarter: 2009Q3

REPORT INFORMATION
  Report Type: 
  Country: None (occurrence: None)
  Receive Date: 20090923
  Receipt Date: 20090910
  Transmission Date: 20100115
  Serious: Yes (Other)
  Sender: FDA-Public Use
  Company Number: ZA-PFIZER INC-2009267365

PATIENT
  Age: 69 Year

DRUGS (2)
  1. ZITHROMAX [Suspect]
     Dosage: 500 MG, UNK
     Route: 048
  2. WARFARIN [Concomitant]
     Route: 048

REACTIONS (2)
  - HAEMORRHAGE [None]
  - PROTHROMBIN LEVEL INCREASED [None]
